FAERS Safety Report 6175335-5 (Version None)
Quarter: 2009Q2

REPORT INFORMATION
  Report Type: 
  Country: None (occurrence: None)
  Receive Date: 20090429
  Receipt Date: 20090416
  Transmission Date: 20091009
  Serious: Yes (Hospitalization)
  Sender: FDA-Public Use
  Company Number: 8044864

PATIENT
  Sex: Male
  Weight: 86.1 kg

DRUGS (7)
  1. CIMZIA [Suspect]
     Indication: CROHN'S DISEASE
     Dosage: 400 MG IV
     Route: 042
     Dates: start: 20080908, end: 20080908
  2. CIMZIA [Suspect]
     Indication: CROHN'S DISEASE
     Dosage: 400 MG SC
     Route: 058
     Dates: start: 20090416
  3. MERCAPTOPURINE [Concomitant]
  4. ENTOCORT EC [Concomitant]
  5. FLAGYL [Concomitant]
  6. LOMOTIL [Concomitant]
  7. IMODIUM [Concomitant]

REACTIONS (8)
  - ARTHRALGIA [None]
  - COLD SWEAT [None]
  - CYANOSIS [None]
  - INJECTION SITE INFECTION [None]
  - PAIN IN EXTREMITY [None]
  - PARAESTHESIA [None]
  - RESPIRATORY RATE INCREASED [None]
  - STAPHYLOCOCCAL INFECTION [None]
